FAERS Safety Report 24362703 (Version 2)
Quarter: 2025Q1

REPORT INFORMATION
  Report Type: Spontaneous
  Country: JP (occurrence: JP)
  Receive Date: 20240925
  Receipt Date: 20250331
  Transmission Date: 20250409
  Serious: Yes (Hospitalization)
  Sender: EISAI
  Company Number: JP-Eisai-202407872_LEN-HCC_P_1

PATIENT
  Sex: Male

DRUGS (1)
  1. LENVIMA [Suspect]
     Active Substance: LENVATINIB
     Indication: Hepatocellular carcinoma
     Dates: start: 20240902, end: 20240910

REACTIONS (1)
  - Cytokine release syndrome [Recovering/Resolving]

NARRATIVE: CASE EVENT DATE: 20240911
